FAERS Safety Report 7327821-X (Version None)
Quarter: 2011Q1

REPORT INFORMATION
  Report Type: 
  Country: None (occurrence: None)
  Receive Date: 20110303
  Receipt Date: 20110225
  Transmission Date: 20110831
  Serious: Yes (Other)
  Sender: FDA-Public Use
  Company Number: US-PFIZER INC-2011043251

PATIENT
  Sex: Male

DRUGS (1)
  1. CHANTIX [Suspect]
     Dosage: UNK
     Dates: start: 20080801

REACTIONS (5)
  - HEADACHE [None]
  - NAUSEA [None]
  - IRRITABILITY [None]
  - SUICIDE ATTEMPT [None]
  - ABNORMAL DREAMS [None]
